FAERS Safety Report 9492547 (Version 1)
Quarter: 2013Q3

REPORT INFORMATION
  Report Type: Spontaneous
  Country: ES (occurrence: ES)
  Receive Date: 20130830
  Receipt Date: 20130830
  Transmission Date: 20140515
  Serious: Yes (Hospitalization)
  Sender: FDA-Public Use
  Company Number: ES-VERTEX PHARMACEUTICALS INC-2013-009194

PATIENT
  Age: 57 Year
  Sex: Male

DRUGS (4)
  1. INCIVO [Suspect]
     Indication: HEPATITIS C
     Dates: start: 20130520
  2. REBETOL [Concomitant]
     Indication: HEPATITIS C
     Dates: start: 20130422
  3. PEGINTRON [Concomitant]
     Indication: HEPATITIS C
     Dosage: 1.2 ?G/KG, QW
     Dates: start: 20130422
  4. PROPRANOLOL [Concomitant]
     Indication: VARICES OESOPHAGEAL

REACTIONS (6)
  - Hepatopulmonary syndrome [Unknown]
  - Respiratory failure [Recovered/Resolved]
  - Upper respiratory tract infection [Recovered/Resolved]
  - Cough [Unknown]
  - Fatigue [Unknown]
  - Asthenia [Unknown]
